FAERS Safety Report 12180542 (Version 3)
Quarter: 2016Q2

REPORT INFORMATION
  Report Type: Spontaneous
  Country: JP (occurrence: JP)
  Receive Date: 20160315
  Receipt Date: 20160404
  Transmission Date: 20160815
  Serious: Yes (Other)
  Sender: FDA-Public Use
  Company Number: JP-GLAXOSMITHKLINE-JP2016JPN034460

PATIENT
  Age: 16 Year
  Sex: Female

DRUGS (5)
  1. RELVAR ELLIPTA [Suspect]
     Active Substance: FLUTICASONE FUROATE\VILANTEROL TRIFENATATE
     Indication: ASTHMA
     Dosage: 200 ?G, QD
     Route: 055
  2. MEPTIN [Concomitant]
     Active Substance: PROCATEROL HYDROCHLORIDE
     Indication: ASTHMA
     Dosage: UNK, PRN
  3. FLUTIDE DISKUS [Suspect]
     Active Substance: FLUTICASONE PROPIONATE
     Indication: ASTHMA
     Dosage: UNK
     Route: 055
  4. AMBROXOL HYDROCHLORIDE [Concomitant]
     Active Substance: AMBROXOL HYDROCHLORIDE
     Indication: ASTHMA
     Dosage: 45 MG, QD
  5. SINGULAIR [Concomitant]
     Active Substance: MONTELUKAST SODIUM
     Indication: ASTHMA
     Dosage: 10 MG, QD

REACTIONS (4)
  - Dyspnoea [Recovered/Resolved]
  - Internal haemorrhage [Recovered/Resolved]
  - Oedema peripheral [Recovered/Resolved]
  - Palpitations [Recovered/Resolved]
